FAERS Safety Report 17631851 (Version 8)
Quarter: 2020Q4

REPORT INFORMATION
  Report Type: Report from Study
  Country: US (occurrence: US)
  Receive Date: 20200406
  Receipt Date: 20201111
  Transmission Date: 20210113
  Serious: No
  Sender: FDA-Public Use
  Company Number: NVSC2020US091941

PATIENT
  Age: 68 Year
  Sex: Female

DRUGS (2)
  1. BEOVU [Suspect]
     Active Substance: BROLUCIZUMAB-DBLL
     Dosage: UNK
     Route: 047
  2. BEOVU [Suspect]
     Active Substance: BROLUCIZUMAB-DBLL
     Indication: NEOVASCULAR AGE-RELATED MACULAR DEGENERATION
     Dosage: 6 MG (1 SINGLE DOSE)
     Route: 047
     Dates: start: 20191028

REACTIONS (6)
  - Asthenopia [Unknown]
  - Drug ineffective [Unknown]
  - Mydriasis [Unknown]
  - Eye discharge [Unknown]
  - Visual field defect [Unknown]
  - Vision blurred [Unknown]

NARRATIVE: CASE EVENT DATE: 20200301
